FAERS Safety Report 24143105 (Version 1)
Quarter: 2024Q3

REPORT INFORMATION
  Report Type: Spontaneous
  Country: US (occurrence: US)
  Receive Date: 20240726
  Receipt Date: 20240726
  Transmission Date: 20241017
  Serious: No
  Sender: JOHNSON AND JOHNSON
  Company Number: US-JNJFOC-20240768941

PATIENT
  Age: 85 Year
  Sex: Female
  Weight: 51.2 kg

DRUGS (16)
  1. UPTRAVI [Suspect]
     Active Substance: SELEXIPAG
     Indication: Product used for unknown indication
     Route: 048
  2. TREPROSTINIL SODIUM [Suspect]
     Active Substance: TREPROSTINIL SODIUM
     Indication: Pulmonary arterial hypertension
     Dosage: 72 UG (12 BREATHS), FOUR TIMES A DAY (QID) VIA INHALATION (IH) ROUTE
     Route: 055
     Dates: start: 20230731
  3. HYDROXYCHLOROQUINE DIPHOSPHATE [Concomitant]
     Active Substance: HYDROXYCHLOROQUINE DIPHOSPHATE
  4. PEPCID [Concomitant]
     Active Substance: FAMOTIDINE
  5. ZOLOFT [Concomitant]
     Active Substance: SERTRALINE HYDROCHLORIDE
  6. PFIZER-BIONTECH COVID-19 VACCINE [Concomitant]
     Active Substance: TOZINAMERAN
  7. PROMETHAZINE HYDROCHLORIDE [Concomitant]
     Active Substance: PROMETHAZINE HYDROCHLORIDE
  8. CHOLECALCIFEROL [Concomitant]
     Active Substance: CHOLECALCIFEROL
  9. SPIRONOLACTONE [Concomitant]
     Active Substance: SPIRONOLACTONE
  10. OXYGEN [Concomitant]
     Active Substance: OXYGEN
  11. SYNTHROID [Concomitant]
     Active Substance: LEVOTHYROXINE SODIUM
  12. SYMBICORT [Concomitant]
     Active Substance: BUDESONIDE\FORMOTEROL FUMARATE DIHYDRATE
  13. AMBRISENTAN [Concomitant]
     Active Substance: AMBRISENTAN
  14. LOPERAMIDE [Concomitant]
     Active Substance: LOPERAMIDE
  15. FERROUS SULFATE [Concomitant]
     Active Substance: FERROUS SULFATE
  16. TORSEMIDE [Concomitant]
     Active Substance: TORSEMIDE

REACTIONS (6)
  - Arthritis [Unknown]
  - Diarrhoea [Unknown]
  - Weight decreased [Unknown]
  - Dehydration [Unknown]
  - Oedema peripheral [Recovered/Resolved]
  - Nephropathy [Not Recovered/Not Resolved]
